FAERS Safety Report 6940971-2 (Version None)
Quarter: 2010Q3

REPORT INFORMATION
  Report Type: 
  Country: None (occurrence: None)
  Receive Date: 20100825
  Receipt Date: 20100817
  Transmission Date: 20110219
  Serious: Yes (Other)
  Sender: FDA-Public Use
  Company Number: A0876352A

PATIENT
  Age: 64 Year
  Sex: Male

DRUGS (8)
  1. ADVAIR DISKUS 100/50 [Suspect]
     Indication: ASTHMA
     Dosage: 1PUFF TWICE PER DAY
     Route: 055
     Dates: start: 20091101
  2. DILTIAZEM [Concomitant]
  3. OMEPRAZOLE [Concomitant]
  4. ZOCOR [Concomitant]
  5. ALLOPURINOL [Concomitant]
  6. IBUPROFEN [Concomitant]
  7. ASPIRIN [Concomitant]
  8. HYDROCHLOROTHIAZIDE [Concomitant]

REACTIONS (2)
  - ASTHMA [None]
  - INHALATION THERAPY [None]
